FAERS Safety Report 6347706-5 (Version None)
Quarter: 2009Q3

REPORT INFORMATION
  Report Type: 
  Country: None (occurrence: None)
  Receive Date: 20090910
  Receipt Date: 20090831
  Transmission Date: 20100115
  Serious: Yes (Death)
  Sender: FDA-Public Use
  Company Number: FR-PFIZER INC-2009261511

PATIENT
  Age: 72 Year

DRUGS (8)
  1. TAHOR [Suspect]
     Dosage: 20 MG, 1X/DAY
     Route: 048
     Dates: end: 20090713
  2. METFORMIN HCL [Suspect]
     Dosage: 1000 KIU, 3X/DAY
     Route: 048
     Dates: end: 20090713
  3. HALOPERIDOL DECANOATE [Suspect]
     Dosage: 1 DF, MONTHLY
     Route: 048
     Dates: end: 20090710
  4. ARTANE [Concomitant]
  5. IMOVANE [Concomitant]
  6. HYZAAR [Concomitant]
  7. LASIX [Concomitant]
  8. GLUCOR [Concomitant]

REACTIONS (4)
  - LACTIC ACIDOSIS [None]
  - OVERDOSE [None]
  - RENAL FAILURE ACUTE [None]
  - RHABDOMYOLYSIS [None]
